FAERS Safety Report 25219333 (Version 1)
Quarter: 2025Q2

REPORT INFORMATION
  Report Type: Spontaneous
  Country: IN (occurrence: IN)
  Receive Date: 20250421
  Receipt Date: 20250421
  Transmission Date: 20250717
  Serious: Yes (Other)
  Sender: EPIC PHARM
  Company Number: IN-EPICPHARMA-IN-2025EPCLIT00459

PATIENT
  Age: 12 Year
  Sex: Male

DRUGS (1)
  1. CARBAMAZEPINE [Suspect]
     Active Substance: CARBAMAZEPINE
     Indication: Partial seizures
     Route: 065

REACTIONS (4)
  - Seizure [Recovering/Resolving]
  - Dystonia [Recovering/Resolving]
  - Dyskinesia [Recovering/Resolving]
  - Attention deficit hyperactivity disorder [Recovering/Resolving]
